FAERS Safety Report 9617385 (Version 3)
Quarter: 2013Q4

REPORT INFORMATION
  Report Type: Spontaneous
  Country: US (occurrence: None)
  Receive Date: 20131009
  Receipt Date: 20131125
  Transmission Date: 20140711
  Serious: Yes (Hospitalization, Other)
  Sender: FDA-Public Use
  Company Number: ADR-2013-01788

PATIENT
  Age: 34 Year
  Sex: Male

DRUGS (5)
  1. BACLOFEN [Suspect]
     Indication: SPINAL PAIN
     Dosage: 450 MCG/DAY
  2. CLONIDINE [Suspect]
     Dosage: 450 MCG/DAY
  3. BUPIVACAINE [Suspect]
  4. SUFENTANIL [Suspect]
  5. KLONOPIN [Suspect]
     Dosage: AT BEDTIME
     Route: 048

REACTIONS (4)
  - Pain [None]
  - Nausea [None]
  - Sepsis [None]
  - Vomiting [None]
